FAERS Safety Report 25159424 (Version 1)
Quarter: 2025Q2

REPORT INFORMATION
  Report Type: Spontaneous
  Country: US (occurrence: US)
  Receive Date: 20250404
  Receipt Date: 20250404
  Transmission Date: 20250717
  Serious: Yes (Other)
  Sender: Sintetica
  Company Number: US-SINTETICA US LLC-US-SIN-2025-00007

PATIENT
  Age: 73 Year
  Sex: Male

DRUGS (1)
  1. LIDOCAINE HYDROCHLORIDE [Suspect]
     Active Substance: LIDOCAINE HYDROCHLORIDE
     Indication: Electrocardiogram QT prolonged

REACTIONS (1)
  - Seizure [Unknown]
